FAERS Safety Report 12065465 (Version 1)
Quarter: 2016Q1

REPORT INFORMATION
  Report Type: Spontaneous
  Country: US (occurrence: US)
  Receive Date: 20160210
  Receipt Date: 20160210
  Transmission Date: 20160526
  Serious: No
  Sender: FDA-Public Use
  Company Number: US-ALLERGAN-1510712US

PATIENT
  Age: 40 Year
  Sex: Female
  Weight: 48.73 kg

DRUGS (4)
  1. BOTOX COSMETIC [Suspect]
     Active Substance: ONABOTULINUMTOXINA
     Indication: SKIN WRINKLING
     Dosage: 20 UNITS, SINGLE
     Route: 030
     Dates: start: 2012, end: 2012
  2. BOTOX COSMETIC [Suspect]
     Active Substance: ONABOTULINUMTOXINA
     Dosage: UNK
     Route: 030
     Dates: start: 20150528, end: 20150528
  3. CLARITIN [Concomitant]
     Active Substance: LORATADINE
     Indication: PRODUCT USED FOR UNKNOWN INDICATION
  4. BOTOX COSMETIC [Suspect]
     Active Substance: ONABOTULINUMTOXINA
     Indication: SKIN WRINKLING
     Dosage: 30 UNITS, UNK
     Route: 030
     Dates: start: 201412, end: 201412

REACTIONS (5)
  - Myalgia [Not Recovered/Not Resolved]
  - Facial paresis [Not Recovered/Not Resolved]
  - Lagophthalmos [Recovered/Resolved]
  - Eye swelling [Not Recovered/Not Resolved]
  - Brow ptosis [Recovered/Resolved]

NARRATIVE: CASE EVENT DATE: 201412
